FAERS Safety Report 8871927 (Version 1)
Quarter: 2012Q4

REPORT INFORMATION
  Report Type: Spontaneous
  Country: US (occurrence: None)
  Receive Date: 20121024
  Receipt Date: 20121024
  Transmission Date: 20130627
  Serious: Yes (Death)
  Sender: FDA-Public Use
  Company Number: 2012MA012277

PATIENT
  Age: 23 Year
  Sex: Female

DRUGS (6)
  1. OXYCODONE HCL [Suspect]
  2. METHADONE [Suspect]
     Dates: start: 20100503
  3. METHAMPHETAMINE [Suspect]
  4. ALPRAZOLAM [Suspect]
     Dates: start: 20100503
  5. ENDOCET [Concomitant]
  6. OXYCODONE AND ACETAMINOPHEN [Concomitant]

REACTIONS (6)
  - Overdose [None]
  - Road traffic accident [None]
  - Drug dependence [None]
  - Feeling abnormal [None]
  - Shoplifting [None]
  - Legal problem [None]
